FAERS Safety Report 10210249 (Version 2)
Quarter: 2014Q3

REPORT INFORMATION
  Report Type: Spontaneous
  Country: US (occurrence: US)
  Receive Date: 20140602
  Receipt Date: 20140804
  Transmission Date: 20150326
  Serious: No
  Sender: FDA-Public Use
  Company Number: US-PFIZER INC-2014148590

PATIENT
  Age: 26 Year
  Sex: Female
  Weight: 88 kg

DRUGS (1)
  1. EFFEXOR XR [Suspect]
     Active Substance: VENLAFAXINE HYDROCHLORIDE
     Indication: DEPRESSION
     Dosage: 225 MG (THREE 75 MG CAPSULES), 1X/DAY
     Route: 048
     Dates: end: 201405

REACTIONS (3)
  - Anger [Unknown]
  - Crying [Unknown]
  - Headache [Unknown]

NARRATIVE: CASE EVENT DATE: 201405
